FAERS Safety Report 12375654 (Version 1)
Quarter: 2016Q2

REPORT INFORMATION
  Report Type: Report from Study
  Country: US (occurrence: US)
  Receive Date: 20160517
  Receipt Date: 20160517
  Transmission Date: 20160815
  Serious: No
  Sender: FDA-Public Use
  Company Number: PHEH2016US011692

PATIENT
  Age: 44 Year
  Sex: Female

DRUGS (1)
  1. GILENYA [Suspect]
     Active Substance: FINGOLIMOD HYDROCHLORIDE
     Indication: PRODUCT USED FOR UNKNOWN INDICATION
     Dosage: 0.5 MG, QD
     Route: 048
     Dates: start: 20160507

REACTIONS (10)
  - Paraesthesia oral [Unknown]
  - Hunger [Unknown]
  - Cold sweat [Unknown]
  - Fatigue [Unknown]
  - Tenderness [Unknown]
  - Abdominal discomfort [Unknown]
  - Chest discomfort [Unknown]
  - Dizziness [Unknown]
  - Cardiac flutter [Unknown]
  - Nervousness [Unknown]

NARRATIVE: CASE EVENT DATE: 20160507
